FAERS Safety Report 10213366 (Version 1)
Quarter: 2014Q2

REPORT INFORMATION
  Report Type: Spontaneous
  Country: US (occurrence: None)
  Receive Date: 20140530
  Receipt Date: 20140530
  Transmission Date: 20141212
  Serious: Yes (Disabling)
  Sender: FDA-Public Use
  Company Number: None

PATIENT
  Age: 36 Year
  Sex: Male
  Weight: 97.7 kg

DRUGS (1)
  1. AMIODARONE [Suspect]
     Dates: start: 20141202

REACTIONS (1)
  - Hyperthyroidism [None]
